FAERS Safety Report 25736929 (Version 2)
Quarter: 2025Q3

REPORT INFORMATION
  Report Type: Spontaneous
  Country: MX (occurrence: MX)
  Receive Date: 20250828
  Receipt Date: 20250902
  Transmission Date: 20251021
  Serious: Yes (Other)
  Sender: ROCHE
  Company Number: MX-BoehringerIngelheim-2025-BI-091541

PATIENT
  Age: 38 Year
  Sex: Female

DRUGS (1)
  1. TENECTEPLASE [Suspect]
     Active Substance: TENECTEPLASE
     Indication: Cerebrovascular accident
     Route: 042
     Dates: start: 20250811, end: 20250811

REACTIONS (2)
  - Hemiparesis [Recovered/Resolved]
  - Nervous system disorder [Recovered/Resolved]

NARRATIVE: CASE EVENT DATE: 20250811
